FAERS Safety Report 5390352-0 (Version None)
Quarter: 2007Q3

REPORT INFORMATION
  Report Type: 
  Country: None (occurrence: None)
  Receive Date: 20070718
  Receipt Date: 20070706
  Transmission Date: 20080115
  Serious: Yes (Other)
  Sender: FDA-Public Use
  Company Number: JP-JNJFOC-20070602076

PATIENT
  Sex: Male
  Weight: 71.85 kg

DRUGS (3)
  1. ITRACONAZOLE [Suspect]
     Indication: SYSTEMIC MYCOSIS
     Route: 048
  2. BAKTAR [Concomitant]
     Indication: INFECTION PROPHYLAXIS
     Route: 048
  3. SULFAMETHOXAZOLE AND TRIMETHOPRIM [Concomitant]
     Indication: INFECTION PROPHYLAXIS
     Route: 048

REACTIONS (1)
  - SKIN DISCOLOURATION [None]
